FAERS Safety Report 9260436 (Version 1)
Quarter: 2013Q2

REPORT INFORMATION
  Report Type: Spontaneous
  Country: US (occurrence: US)
  Receive Date: 20130429
  Receipt Date: 20130429
  Transmission Date: 20140414
  Serious: Yes (Hospitalization)
  Sender: FDA-Public Use
  Company Number: US-SANOFI-AVENTIS-2013SA042755

PATIENT
  Age: 63 Year
  Sex: Female
  Weight: 53 kg

DRUGS (2)
  1. MULTAQ [Suspect]
     Indication: ATRIAL FIBRILLATION
     Route: 065
     Dates: start: 20130321, end: 20130331
  2. MULTAQ [Suspect]
     Indication: HEART RATE INCREASED
     Route: 065
     Dates: start: 20130321, end: 20130331

REACTIONS (5)
  - Loss of consciousness [Recovered/Resolved]
  - Respiration abnormal [Recovered/Resolved]
  - Hypotension [Recovered/Resolved]
  - Heart rate decreased [Recovered/Resolved]
  - Nausea [Recovered/Resolved]
